FAERS Safety Report 23431375 (Version 1)
Quarter: 2024Q1

REPORT INFORMATION
  Report Type: Spontaneous
  Country: GB (occurrence: GB)
  Receive Date: 20240123
  Receipt Date: 20240123
  Transmission Date: 20240410
  Serious: No
  Sender: FDA-Public Use
  Company Number: None

PATIENT
  Sex: Female

DRUGS (3)
  1. FINGOLIMOD [Suspect]
     Active Substance: FINGOLIMOD
     Indication: Product used for unknown indication
     Dosage: UNK
     Route: 065
  2. FINGOLIMOD [Suspect]
     Active Substance: FINGOLIMOD
     Dosage: 0.5 MILLIGRAM, QD, CAPSULE, HARD, GILENYA (FINGOLIMOD HYDROCHLORIDE, FINGOLIMOD)
     Route: 048
  3. LEVOTHYROXINE [Concomitant]
     Active Substance: LEVOTHYROXINE\LEVOTHYROXINE SODIUM
     Indication: Product used for unknown indication
     Dosage: UNK
     Route: 065

REACTIONS (7)
  - Eye pain [Unknown]
  - Tongue discomfort [Recovered/Resolved]
  - Swollen tongue [Recovered/Resolved]
  - Pyrexia [Unknown]
  - Nasopharyngitis [Unknown]
  - Dizziness [Unknown]
  - Headache [Unknown]
